FAERS Safety Report 11655947 (Version 1)
Quarter: 2015Q4

REPORT INFORMATION
  Report Type: Spontaneous
  Country: CA (occurrence: CA)
  Receive Date: 20151023
  Receipt Date: 20151023
  Transmission Date: 20160304
  Serious: Yes (Other)
  Sender: FDA-Public Use
  Company Number: CA-TEVA-601906ACC

PATIENT
  Age: 17 Year
  Sex: Female
  Weight: 56 kg

DRUGS (7)
  1. BUPROPION. [Suspect]
     Active Substance: BUPROPION
     Indication: ANTIDEPRESSANT THERAPY
     Dosage: 150 MILLIGRAM DAILY;
     Route: 048
  2. OLANZAPINE. [Concomitant]
     Active Substance: OLANZAPINE
  3. DIPHENHYDRAMINE. [Concomitant]
     Active Substance: DIPHENHYDRAMINE
  4. BENZTROPINE [Concomitant]
     Active Substance: BENZTROPINE
  5. PROCYCLIDINE HCL [Concomitant]
     Active Substance: PROCYCLIDINE HYDROCHLORIDE
  6. HALOPERIDOL. [Concomitant]
     Active Substance: HALOPERIDOL
  7. LORAZEPAM. [Concomitant]
     Active Substance: LORAZEPAM

REACTIONS (2)
  - Joint dislocation [Recovered/Resolved]
  - Seizure [Recovered/Resolved]
